FAERS Safety Report 12100138 (Version 2)
Quarter: 2016Q2

REPORT INFORMATION
  Report Type: Spontaneous
  Country: DE (occurrence: DE)
  Receive Date: 20160222
  Receipt Date: 20160408
  Transmission Date: 20160815
  Serious: Yes (Hospitalization, Congenital Anomaly, Other)
  Sender: FDA-Public Use
  Company Number: DE-ACTELION-A-CH2016-131573

PATIENT
  Sex: Female
  Weight: 1.35 kg

DRUGS (9)
  1. TINZAPARIN [Suspect]
     Active Substance: TINZAPARIN
     Indication: EXPOSURE DURING PREGNANCY
     Route: 064
  2. OPSUMIT [Suspect]
     Active Substance: MACITENTAN
     Indication: EXPOSURE DURING PREGNANCY
     Dosage: 10 MG, QD
     Route: 064
     Dates: end: 20150323
  3. VENTAVIS [Suspect]
     Active Substance: ILOPROST
     Indication: EXPOSURE DURING PREGNANCY
     Dosage: UNK
     Route: 064
     Dates: end: 201505
  4. AZATHIOPRIN [Suspect]
     Active Substance: AZATHIOPRINE
     Indication: EXPOSURE DURING PREGNANCY
     Dosage: 50 UNK, QD
     Route: 064
  5. TREPROSTINIL [Suspect]
     Active Substance: TREPROSTINIL
     Indication: EXPOSURE DURING PREGNANCY
     Route: 064
  6. PREDNISOLONE. [Suspect]
     Active Substance: PREDNISOLONE
     Indication: EXPOSURE DURING PREGNANCY
     Route: 064
  7. HYDROXYCHLOROQUINE [Suspect]
     Active Substance: HYDROXYCHLOROQUINE
     Indication: EXPOSURE DURING PREGNANCY
     Route: 064
  8. SILDENAFIL. [Suspect]
     Active Substance: SILDENAFIL
     Indication: EXPOSURE DURING PREGNANCY
     Dosage: 20 MG, TID
     Route: 064
  9. APIXABAN [Suspect]
     Active Substance: APIXABAN
     Indication: EXPOSURE DURING PREGNANCY
     Route: 064

REACTIONS (9)
  - Posture abnormal [Unknown]
  - Chondrodystrophy [Unknown]
  - Neonatal respiratory distress syndrome [Recovered/Resolved]
  - Bradycardia [Recovered/Resolved]
  - Cyanosis [Recovered/Resolved]
  - Hypotonia [Recovered/Resolved]
  - Congenital musculoskeletal anomaly [Unknown]
  - Foetal growth restriction [Unknown]
  - Premature baby [Unknown]
